FAERS Safety Report 23706770 (Version 1)
Quarter: 2024Q2

REPORT INFORMATION
  Report Type: Spontaneous
  Country: US (occurrence: US)
  Receive Date: 20240404
  Receipt Date: 20240404
  Transmission Date: 20240715
  Serious: Yes (Hospitalization, Other)
  Sender: FDA-Public Use
  Company Number: US-DRL-USA-LIT/USA/24/0005014

PATIENT
  Age: 27 Year
  Sex: Male

DRUGS (2)
  1. BIVALIRUDIN [Suspect]
     Active Substance: BIVALIRUDIN
     Indication: Anticoagulant therapy
     Dosage: 0.15 MG/KG/H
  2. BIVALIRUDIN [Suspect]
     Active Substance: BIVALIRUDIN
     Indication: Off label use
     Dosage: 0.33 MG/KG (99 H)

REACTIONS (2)
  - Haemorrhage [Unknown]
  - Off label use [Unknown]
